FAERS Safety Report 25421140 (Version 1)
Quarter: 2025Q2

REPORT INFORMATION
  Report Type: Spontaneous
  Country: US (occurrence: US)
  Receive Date: 20250611
  Receipt Date: 20250611
  Transmission Date: 20250716
  Serious: No
  Sender: BRAEBURN PHARMACEUTICALS
  Company Number: US-BRAEBURN PHARMACEUTICALS-US-BRA-25-000432

PATIENT
  Sex: Male

DRUGS (4)
  1. BRIXADI [Suspect]
     Active Substance: BUPRENORPHINE
     Indication: Product used for unknown indication
     Dosage: 8 MILLIGRAM, QW
     Route: 065
     Dates: start: 20250214, end: 20250214
  2. BRIXADI [Suspect]
     Active Substance: BUPRENORPHINE
     Dosage: 16 MILLIGRAM, QW, LEFT BUTTOCKS
     Route: 065
     Dates: start: 20250221, end: 20250221
  3. BRIXADI [Suspect]
     Active Substance: BUPRENORPHINE
     Dosage: 16 MILLIGRAM, QW, RIGHT THIGH
     Route: 065
     Dates: start: 20250228, end: 20250228
  4. BRIXADI [Suspect]
     Active Substance: BUPRENORPHINE
     Dosage: 16 MILLIGRAM, QW, LEFT THIGH
     Route: 065
     Dates: start: 20250307, end: 20250307

REACTIONS (2)
  - Injection site erythema [Unknown]
  - Injection site warmth [Unknown]

NARRATIVE: CASE EVENT DATE: 20250201
